FAERS Safety Report 8890686 (Version 1)
Quarter: 2012Q4

REPORT INFORMATION
  Report Type: 
  Country: US (occurrence: US)
  Receive Date: 20121107
  Receipt Date: 20121107
  Transmission Date: 20130627
  Serious: No
  Sender: FDA-Public Use
  Company Number: US-PFIZER INC-2012276105

PATIENT

DRUGS (1)
  1. NITROSTAT [Suspect]
     Dosage: UNK

REACTIONS (2)
  - Analgesic therapy [Unknown]
  - Therapeutic response unexpected [Unknown]
